FAERS Safety Report 24680143 (Version 2)
Quarter: 2024Q4

REPORT INFORMATION
  Report Type: Spontaneous
  Country: AR (occurrence: AR)
  Receive Date: 20241129
  Receipt Date: 20241210
  Transmission Date: 20250115
  Serious: Yes (Other)
  Sender: MERCK
  Company Number: AR-009507513-2411ARG011536

PATIENT
  Age: 67 Year
  Sex: Female

DRUGS (2)
  1. PEMBROLIZUMAB [Suspect]
     Active Substance: PEMBROLIZUMAB
     Indication: Renal cancer
     Dosage: 200 MILLIGRAM (MG), EVERY 21 DAYS (Q3W)
     Dates: start: 202410
  2. AXITINIB [Suspect]
     Active Substance: AXITINIB
     Indication: Renal cancer
     Dosage: 5 MILLIGRAM (MG) BID, CONTINUOUSLY
     Dates: start: 202410

REACTIONS (1)
  - Posterior reversible encephalopathy syndrome [Recovered/Resolved]
